FAERS Safety Report 9390387 (Version 15)
Quarter: 2015Q3

REPORT INFORMATION
  Report Type: Report from Study
  Country: CA (occurrence: CA)
  Receive Date: 20130709
  Receipt Date: 20150903
  Transmission Date: 20151125
  Serious: Yes (Hospitalization, Other)
  Sender: FDA-Public Use
  Company Number: CA-ROCHE-1235147

PATIENT
  Age: 62 Year
  Sex: Female
  Weight: 113 kg

DRUGS (16)
  1. VITAMIN E [Concomitant]
     Active Substance: .ALPHA.-TOCOPHEROL
  2. STATEX (CANADA) [Concomitant]
  3. AVAPRO [Concomitant]
     Active Substance: IRBESARTAN
  4. ELAVIL [Concomitant]
     Active Substance: AMITRIPTYLINE HYDROCHLORIDE
  5. SALAZOPYRIN [Concomitant]
     Active Substance: SULFASALAZINE
  6. LIPITOR [Concomitant]
     Active Substance: ATORVASTATIN CALCIUM
  7. VOLTAREN [Concomitant]
     Active Substance: DICLOFENAC SODIUM
  8. ACTEMRA [Suspect]
     Active Substance: TOCILIZUMAB
     Indication: RHEUMATOID ARTHRITIS
     Route: 042
     Dates: start: 20130603
  9. CYMBALTA [Concomitant]
     Active Substance: DULOXETINE HYDROCHLORIDE
  10. SYNTHROID [Concomitant]
     Active Substance: LEVOTHYROXINE SODIUM
  11. GABAPENTIN. [Concomitant]
     Active Substance: GABAPENTIN
  12. DOCUSATE SODIUM. [Concomitant]
     Active Substance: DOCUSATE SODIUM
  13. CYCLOBENZAPRINE [Concomitant]
     Active Substance: CYCLOBENZAPRINE
  14. FUROSEMIDE. [Concomitant]
     Active Substance: FUROSEMIDE
  15. ATENOLOL. [Concomitant]
     Active Substance: ATENOLOL
  16. VITAMIN E [Concomitant]
     Active Substance: .ALPHA.-TOCOPHEROL

REACTIONS (12)
  - Abasia [Not Recovered/Not Resolved]
  - Oxygen saturation decreased [Unknown]
  - Arthralgia [Not Recovered/Not Resolved]
  - Pain in extremity [Not Recovered/Not Resolved]
  - Impaired healing [Not Recovered/Not Resolved]
  - Scar [Recovered/Resolved]
  - Back pain [Unknown]
  - Skin irritation [Recovering/Resolving]
  - Diabetes mellitus [Unknown]
  - Foreign body sensation in eyes [Recovered/Resolved]
  - Rash [Recovered/Resolved]
  - Arthropod bite [Recovering/Resolving]

NARRATIVE: CASE EVENT DATE: 20130605
